FAERS Safety Report 17002462 (Version 5)
Quarter: 2023Q1

REPORT INFORMATION
  Report Type: Spontaneous
  Country: US (occurrence: None)
  Receive Date: 20191107
  Receipt Date: 20230220
  Transmission Date: 20230418
  Serious: Yes (Death, Other)
  Sender: FDA-Public Use
  Company Number: 2019SF56976

PATIENT
  Age: 484 Month
  Sex: Female

DRUGS (33)
  1. PRILOSEC [Suspect]
     Active Substance: OMEPRAZOLE MAGNESIUM
     Indication: Gastrooesophageal reflux disease
     Route: 048
     Dates: start: 2010, end: 2018
  2. PRILOSEC [Suspect]
     Active Substance: OMEPRAZOLE MAGNESIUM
     Indication: Dyspepsia
     Route: 048
     Dates: start: 2010, end: 2018
  3. PRILOSEC [Suspect]
     Active Substance: OMEPRAZOLE MAGNESIUM
     Indication: Gastrooesophageal reflux disease
     Dosage: GENERIC
     Dates: start: 201501, end: 201808
  4. PRILOSEC [Suspect]
     Active Substance: OMEPRAZOLE MAGNESIUM
     Indication: Dyspepsia
     Dosage: GENERIC
     Dates: start: 201501, end: 201808
  5. PRILOSEC [Suspect]
     Active Substance: OMEPRAZOLE MAGNESIUM
     Indication: Gastrooesophageal reflux disease
     Route: 048
     Dates: start: 2012, end: 2018
  6. PRILOSEC [Suspect]
     Active Substance: OMEPRAZOLE MAGNESIUM
     Indication: Dyspepsia
     Route: 048
     Dates: start: 2012, end: 2018
  7. PRILOSEC [Suspect]
     Active Substance: OMEPRAZOLE MAGNESIUM
     Indication: Gastrooesophageal reflux disease
     Route: 048
     Dates: start: 20180130
  8. PRILOSEC [Suspect]
     Active Substance: OMEPRAZOLE MAGNESIUM
     Indication: Dyspepsia
     Route: 048
     Dates: start: 20180130
  9. NEXIUM [Suspect]
     Active Substance: ESOMEPRAZOLE MAGNESIUM
     Route: 048
  10. ZANTAC [Suspect]
     Active Substance: RANITIDINE HYDROCHLORIDE
     Dates: start: 2010, end: 2018
  11. ZANTAC [Suspect]
     Active Substance: RANITIDINE HYDROCHLORIDE
     Dates: start: 201808, end: 201810
  12. CLONAZEPAM [Concomitant]
     Active Substance: CLONAZEPAM
  13. METRONIDAZOLE [Concomitant]
     Active Substance: METRONIDAZOLE
  14. CEPHALEXIN [Concomitant]
     Active Substance: CEPHALEXIN
  15. AZITHROMYCIN [Concomitant]
     Active Substance: AZITHROMYCIN
  16. OXYCODONE [Concomitant]
     Active Substance: OXYCODONE
  17. POTASSIUM CHLORIDE [Concomitant]
     Active Substance: POTASSIUM CHLORIDE
  18. FERROUS SULFATE [Concomitant]
     Active Substance: FERROUS SULFATE
  19. MELATONIN [Concomitant]
     Active Substance: MELATONIN
  20. OLANZAPINE [Concomitant]
     Active Substance: OLANZAPINE
  21. TAMSULOSIN [Concomitant]
     Active Substance: TAMSULOSIN
  22. HYDROCODONE BITARTRATE\IBUPROFEN [Concomitant]
     Active Substance: HYDROCODONE BITARTRATE\IBUPROFEN
  23. KETOROLAC [Concomitant]
     Active Substance: KETOROLAC TROMETHAMINE
  24. PAROXETINE [Concomitant]
     Active Substance: PAROXETINE
  25. LOESTRIN NOS [Concomitant]
     Active Substance: ETHINYL ESTRADIOL\NORETHINDRONE ACETATE
  26. ONDANSETRON [Concomitant]
     Active Substance: ONDANSETRON
  27. OXALIPLATIN [Concomitant]
     Active Substance: OXALIPLATIN
  28. IOPAMIDOL [Concomitant]
     Active Substance: IOPAMIDOL
  29. ALTEPLASE [Concomitant]
     Active Substance: ALTEPLASE
  30. ATROPINE [Concomitant]
     Active Substance: ATROPINE
  31. BACTRIM [Concomitant]
     Active Substance: SULFAMETHOXAZOLE\TRIMETHOPRIM
  32. VESICARE [Concomitant]
     Active Substance: SOLIFENACIN SUCCINATE
  33. LOVENOX [Concomitant]
     Active Substance: ENOXAPARIN SODIUM

REACTIONS (4)
  - Metastatic gastric cancer [Fatal]
  - Metastases to peritoneum [Unknown]
  - Ascites [Unknown]
  - Adenocarcinoma gastric [Unknown]

NARRATIVE: CASE EVENT DATE: 20181001
